FAERS Safety Report 4724028-7 (Version None)
Quarter: 2005Q3

REPORT INFORMATION
  Report Type: 
  Country: None (occurrence: None)
  Receive Date: 20050721
  Receipt Date: 20050712
  Transmission Date: 20060218
  Serious: Yes (Other)
  Sender: FDA-Public Use
  Company Number: 2005059069

PATIENT
  Age: 81 Year
  Sex: Female

DRUGS (1)
  1. BEXTRA [Suspect]
     Indication: PULMONARY OEDEMA
     Dosage: ORAL
     Route: 048
     Dates: start: 20050101

REACTIONS (2)
  - ERYTHEMA [None]
  - PRURITUS [None]
